FAERS Safety Report 6245381-1 (Version None)
Quarter: 2009Q2

REPORT INFORMATION
  Report Type: 
  Country: None (occurrence: None)
  Receive Date: 20090625
  Receipt Date: 20090617
  Transmission Date: 20091009
  Serious: Yes (Other)
  Sender: FDA-Public Use
  Company Number: FR-ASTRAZENECA-2009CG01280

PATIENT
  Age: 12 Year
  Sex: Female

DRUGS (3)
  1. NEXIUM [Suspect]
     Indication: HELICOBACTER GASTRITIS
     Route: 048
     Dates: start: 20090501, end: 20090601
  2. ANTIBIOTICS [Concomitant]
     Indication: HELICOBACTER GASTRITIS
     Dates: start: 20090501, end: 20090501
  3. ESTIMA [Concomitant]
     Dates: start: 20090501, end: 20090608

REACTIONS (4)
  - DYSPNOEA [None]
  - HALLUCINATION [None]
  - HEADACHE [None]
  - IRRITABILITY [None]
